FAERS Safety Report 23619079 (Version 1)
Quarter: 2024Q1

REPORT INFORMATION
  Report Type: Spontaneous
  Country: DE (occurrence: DE)
  Receive Date: 20240311
  Receipt Date: 20240311
  Transmission Date: 20240409
  Serious: Yes (Hospitalization)
  Sender: FDA-Public Use
  Company Number: None

PATIENT
  Age: 22 Year
  Sex: Female
  Weight: 47 kg

DRUGS (1)
  1. DROSPIRENONE [Suspect]
     Active Substance: DROSPIRENONE
     Indication: Ovulation pain
     Dosage: 4MG
     Route: 048
     Dates: start: 20230815, end: 20230923

REACTIONS (1)
  - Constipation [Recovered/Resolved]

NARRATIVE: CASE EVENT DATE: 20230923
